FAERS Safety Report 4326232-9 (Version None)
Quarter: 2004Q1

REPORT INFORMATION
  Report Type: 
  Country: None (occurrence: None)
  Receive Date: 20040324
  Receipt Date: 20040109
  Transmission Date: 20041129
  Serious: Yes (Other)
  Sender: FDA-Public Use
  Company Number: 2004-DE-00120GD

PATIENT
  Age: 35 Year
  Sex: Male

DRUGS (3)
  1. NEVIRAPINE       (NEVIRAPINE) [Suspect]
     Indication: HIV INFECTION
     Dates: start: 19981001
  2. 3TC (LAMIVUDINE) [Suspect]
     Indication: HIV INFECTION
     Dates: start: 19981001
  3. D4T (STAVIDINE) [Suspect]
     Indication: HIV INFECTION
     Dates: start: 19981001

REACTIONS (2)
  - PNEUMONIA CYTOMEGALOVIRAL [None]
  - REFUSAL OF TREATMENT BY PATIENT [None]
